FAERS Safety Report 15233317 (Version 2)
Quarter: 2019Q2

REPORT INFORMATION
  Report Type: Spontaneous
  Country: CA (occurrence: CA)
  Receive Date: 20180802
  Receipt Date: 20190603
  Transmission Date: 20190711
  Serious: Yes (Life-Threatening)
  Sender: FDA-Public Use
  Company Number: CA-TEVA-2018-CA-934961

PATIENT
  Age: 14 Year
  Sex: Female
  Weight: 68.1 kg

DRUGS (1)
  1. MINOCYCLINE [Suspect]
     Active Substance: MINOCYCLINE\MINOCYCLINE HYDROCHLORIDE
     Indication: ACNE
     Dosage: 100 MILLIGRAM DAILY;
     Route: 048

REACTIONS (13)
  - Diplopia [Recovering/Resolving]
  - Optic nerve injury [Recovering/Resolving]
  - Headache [Recovering/Resolving]
  - Impaired work ability [Recovering/Resolving]
  - Intracranial pressure increased [Recovering/Resolving]
  - Decreased activity [Recovering/Resolving]
  - Photophobia [Recovering/Resolving]
  - Specialist consultation [Recovering/Resolving]
  - Asthenia [Recovering/Resolving]
  - Drug ineffective [Recovering/Resolving]
  - Papilloedema [Recovering/Resolving]
  - Hyperacusis [Recovering/Resolving]
  - Idiopathic intracranial hypertension [Recovering/Resolving]
